FAERS Safety Report 9543117 (Version 1)
Quarter: 2013Q2

REPORT INFORMATION
  Report Type: Spontaneous
  Country: US (occurrence: None)
  Receive Date: 20130524
  Receipt Date: 20130524
  Transmission Date: 20140414
  Serious: No
  Sender: FDA-Public Use
  Company Number: PHEH2012US025787

PATIENT
  Age: 44 Year
  Sex: Female

DRUGS (1)
  1. GILENYA [Suspect]
     Indication: MULTIPLE SCLEROSIS
     Dosage: 0.5 MG, UNK, ORAL 05JAN2012 TO UNK
     Route: 048
     Dates: start: 20120105

REACTIONS (3)
  - Feeling jittery [None]
  - Fatigue [None]
  - Dizziness [None]
